FAERS Safety Report 6857654-X (Version None)
Quarter: 2010Q3

REPORT INFORMATION
  Report Type: 
  Country: None (occurrence: None)
  Receive Date: 20100719
  Receipt Date: 20080218
  Transmission Date: 20110219
  Serious: No
  Sender: FDA-Public Use
  Company Number: US-PFIZER INC-2008009109

PATIENT
  Sex: Male
  Weight: 70.3 kg

DRUGS (2)
  1. CHANTIX [Suspect]
     Indication: SMOKING CESSATION THERAPY
     Dates: start: 20071101, end: 20071224
  2. LEVOXYL [Concomitant]
     Indication: HYPOTHYROIDISM

REACTIONS (12)
  - ABNORMAL DREAMS [None]
  - AGITATION [None]
  - AMNESIA [None]
  - BALANCE DISORDER [None]
  - BELLIGERENCE [None]
  - DISTURBANCE IN ATTENTION [None]
  - HEADACHE [None]
  - INSOMNIA [None]
  - IRRITABILITY [None]
  - MOOD ALTERED [None]
  - THINKING ABNORMAL [None]
  - TINNITUS [None]
